FAERS Safety Report 24187528 (Version 2)
Quarter: 2024Q3

REPORT INFORMATION
  Report Type: Spontaneous
  Country: JP (occurrence: JP)
  Receive Date: 20240808
  Receipt Date: 20240909
  Transmission Date: 20241017
  Serious: Yes (Other)
  Sender: REGENERON
  Company Number: JP-BAYER-2024A113160

PATIENT
  Age: 74 Year
  Sex: Female

DRUGS (3)
  1. EYLEA HD [Suspect]
     Active Substance: AFLIBERCEPT
     Indication: Neovascular age-related macular degeneration
     Dosage: UNK, ONCE, SOLUTION FOR INJECTION, 114.3 MG/ML
     Route: 031
  2. EYLEA HD [Suspect]
     Active Substance: AFLIBERCEPT
     Dosage: 0.07 ML (8 MG) ONCE, ONE EYE, SOLUTION FOR INJECTION, 114.3 MG/ML
     Route: 031
     Dates: start: 202407, end: 202407
  3. EYLEA HD [Suspect]
     Active Substance: AFLIBERCEPT
     Dosage: 0.07 ML (8 MG) ONCE, THE OTHER EYE (TREATED ON BOTH EYES), SOLUTION FOR INJECTION, 114.3 MG/ML
     Route: 031
     Dates: start: 2024, end: 2024

REACTIONS (6)
  - Amaurosis fugax [Recovering/Resolving]
  - Amaurosis fugax [Recovering/Resolving]
  - Intraocular pressure increased [Unknown]
  - Intraocular pressure increased [Recovering/Resolving]
  - Visual field defect [Recovering/Resolving]
  - Visual field defect [Recovering/Resolving]

NARRATIVE: CASE EVENT DATE: 20240101
